FAERS Safety Report 17399181 (Version 3)
Quarter: 2020Q1

REPORT INFORMATION
  Report Type: Spontaneous
  Country: US (occurrence: US)
  Receive Date: 20200210
  Receipt Date: 20200227
  Transmission Date: 20200409
  Serious: Yes (Disabling, Other)
  Sender: FDA-Public Use
  Company Number: US-AMGEN-USASP2020020352

PATIENT
  Age: 85 Year
  Sex: Female
  Weight: 56.24 kg

DRUGS (9)
  1. AMLODIPINE [Concomitant]
     Active Substance: AMLODIPINE BESYLATE
     Dosage: 10 MILLIGRAM, QD
  2. LISINOPRIL. [Concomitant]
     Active Substance: LISINOPRIL
     Dosage: 40 MILLIGRAM, QD
     Route: 048
  3. PROLIA [Suspect]
     Active Substance: DENOSUMAB
     Indication: OSTEOPOROSIS
     Dosage: 60 MILLIGRAM, Q6MO
     Route: 058
     Dates: start: 2017, end: 201909
  4. VOLTAREN [DICLOFENAC] [Concomitant]
     Active Substance: DICLOFENAC SODIUM
     Dosage: APPLY 2 GRAM TO THE AFFECTED AREA(S) BY TOPICAL ROUTE 4 TIMES PER DAY
  5. TRAMADOL. [Concomitant]
     Active Substance: TRAMADOL
     Dosage: 1 DOSAGE FORM, Q6H
     Route: 048
  6. VALIUM [Concomitant]
     Active Substance: DIAZEPAM
     Dosage: 1 DOSAGE FORM, BID
     Route: 048
  7. PREMARIN [Concomitant]
     Active Substance: ESTROGENS, CONJUGATED
     Dosage: INSERT 0.5 APPLICATOR(S)FUL EVERY DAY BY VAGINAL ROUTE
  8. BYSTOLIC [Concomitant]
     Active Substance: NEBIVOLOL HYDROCHLORIDE
     Dosage: 10 MILLIGRAM, QD
  9. CLONIDINE. [Concomitant]
     Active Substance: CLONIDINE
     Dosage: TABLET(S) 3 BMES A DAY BY ORAL ROUTE AS NEEDED

REACTIONS (3)
  - Dental care [Unknown]
  - Osteomyelitis [Not Recovered/Not Resolved]
  - Post procedural infection [Unknown]

NARRATIVE: CASE EVENT DATE: 201909
